FAERS Safety Report 20507668 (Version 3)
Quarter: 2022Q2

REPORT INFORMATION
  Report Type: Report from Study
  Country: JP (occurrence: JP)
  Receive Date: 20220223
  Receipt Date: 20220406
  Transmission Date: 20220721
  Serious: Yes (Other)
  Sender: FDA-Public Use
  Company Number: JP-PFIZER INC-202200294361

PATIENT
  Age: 11 Month
  Sex: Male

DRUGS (1)
  1. SIROLIMUS [Suspect]
     Active Substance: SIROLIMUS
     Indication: Lymphangiectasia
     Dosage: UNK
     Route: 048
     Dates: start: 20211125

REACTIONS (1)
  - Blood creatine phosphokinase increased [Unknown]
